FAERS Safety Report 10062776 (Version 1)
Quarter: 2014Q2

REPORT INFORMATION
  Report Type: Spontaneous
  Country: US (occurrence: None)
  Receive Date: 20140401
  Receipt Date: 20140401
  Transmission Date: 20141212
  Serious: Yes (Disabling)
  Sender: FDA-Public Use
  Company Number: PHEH2013US021657

PATIENT
  Age: 80 Year
  Sex: Female
  Weight: 54 kg

DRUGS (4)
  1. EXELON [Suspect]
     Indication: DEMENTIA ALZHEIMER^S TYPE
     Route: 048
  2. FISH OIL (FISH OIL) [Concomitant]
  3. MULTI-VIT (VITAMINS NOS) [Concomitant]
  4. VIT D (ERGOCALCIFEROL) [Concomitant]

REACTIONS (4)
  - Nausea [None]
  - Abdominal pain [None]
  - Dizziness [None]
  - Abdominal discomfort [None]
